FAERS Safety Report 9698569 (Version 2)
Quarter: 2014Q1

REPORT INFORMATION
  Report Type: Spontaneous
  Country: ES (occurrence: ES)
  Receive Date: 20131120
  Receipt Date: 20140305
  Transmission Date: 20141002
  Serious: Yes (Other)
  Sender: FDA-Public Use
  Company Number: ES-GLAXOSMITHKLINE-B0929740A

PATIENT
  Age: 56 Year
  Sex: Female

DRUGS (3)
  1. TROBALT [Suspect]
     Indication: PARTIAL SEIZURES
     Route: 048
     Dates: start: 20120201
  2. LEVETIRACETAM [Concomitant]
     Indication: EPILEPSY
     Dosage: 200MG PER DAY
  3. ANTI-EPILEPTIC DRUGS [Concomitant]

REACTIONS (8)
  - Mental impairment [Unknown]
  - Hallucination, visual [Recovering/Resolving]
  - Headache [Unknown]
  - Dizziness [Unknown]
  - Confusional state [Unknown]
  - Clumsiness [Unknown]
  - Stress [Unknown]
  - Convulsion [Unknown]
